FAERS Safety Report 6382934-4 (Version None)
Quarter: 2009Q3

REPORT INFORMATION
  Report Type: 
  Country: None (occurrence: None)
  Receive Date: 20090930
  Receipt Date: 20090917
  Transmission Date: 20100115
  Serious: Yes (Hospitalization)
  Sender: FDA-Public Use
  Company Number: FR-PFIZER INC-2009270351

PATIENT
  Age: 30 Year

DRUGS (3)
  1. SOLU-MEDROL [Suspect]
     Indication: POLYNEUROPATHY
     Dosage: UNK
     Route: 042
     Dates: start: 20071027, end: 20071107
  2. MABTHERA [Suspect]
     Indication: POLYNEUROPATHY
     Dosage: UNK
     Route: 042
     Dates: start: 20071027, end: 20071107
  3. POLARAMINE [Suspect]
     Indication: POLYNEUROPATHY
     Dosage: UNK
     Route: 042
     Dates: start: 20071107, end: 20071107

REACTIONS (2)
  - ABDOMINAL PAIN [None]
  - BACK PAIN [None]
